FAERS Safety Report 11018078 (Version 2)
Quarter: 2015Q2

REPORT INFORMATION
  Report Type: Spontaneous
  Country: US (occurrence: US)
  Receive Date: 20150412
  Receipt Date: 20150524
  Transmission Date: 20150821
  Serious: No
  Sender: FDA-Public Use
  Company Number: US-JNJFOC-20130403765

PATIENT

DRUGS (4)
  1. DOXORUBICIN HYDROCHLORIDE. [Suspect]
     Active Substance: DOXORUBICIN HYDROCHLORIDE
     Indication: MYXOID LIPOSARCOMA
     Dosage: 75-90 MG/M2 CONTINOUS INFUSION OVER 72H
     Route: 042
  2. GEMCITABINE [Suspect]
     Active Substance: GEMCITABINE\GEMCITABINE HYDROCHLORIDE
     Indication: MYXOID LIPOSARCOMA
     Route: 065
  3. RADIATION THERAPY NOS [Suspect]
     Active Substance: RADIATION THERAPY
     Indication: MYXOID LIPOSARCOMA
     Route: 065
  4. IFOSFAMIDE. [Suspect]
     Active Substance: IFOSFAMIDE
     Indication: MYXOID LIPOSARCOMA
     Dosage: 2.5 G/ M2 EVERY 3 WEEKS FOR 4-6 CYCLES
     Route: 065

REACTIONS (2)
  - Histology abnormal [Unknown]
  - Product use issue [Unknown]
